FAERS Safety Report 9385726 (Version 1)
Quarter: 2013Q3

REPORT INFORMATION
  Report Type: Spontaneous
  Country: NL (occurrence: NL)
  Receive Date: 20130705
  Receipt Date: 20130705
  Transmission Date: 20140515
  Serious: Yes (Hospitalization, Congenital Anomaly)
  Sender: FDA-Public Use
  Company Number: NL-BRISTOL-MYERS SQUIBB COMPANY-19067503

PATIENT
  Age: 12 Day
  Sex: Male
  Weight: 2.32 kg

DRUGS (1)
  1. PRAVASTATIN SODIUM [Suspect]

REACTIONS (1)
  - Fallot^s tetralogy [Unknown]
